FAERS Safety Report 17048650 (Version 1)
Quarter: 2019Q4

REPORT INFORMATION
  Report Type: Spontaneous
  Country: US (occurrence: US)
  Receive Date: 20191118
  Receipt Date: 20191118
  Transmission Date: 20200122
  Serious: Yes (Other)
  Sender: FDA-Public Use
  Company Number: None

PATIENT
  Age: 57 Year
  Sex: Female

DRUGS (1)
  1. IBRANCE [Suspect]
     Active Substance: PALBOCICLIB
     Indication: DISEASE PROGRESSION
     Route: 048
     Dates: start: 20190528, end: 20191118

REACTIONS (1)
  - Disease progression [None]

NARRATIVE: CASE EVENT DATE: 20191118
